FAERS Safety Report 7848615-2 (Version None)
Quarter: 2011Q4

REPORT INFORMATION
  Report Type: 
  Country: None (occurrence: None)
  Receive Date: 20111026
  Receipt Date: 20111018
  Transmission Date: 20120403
  Serious: Yes (Hospitalization)
  Sender: FDA-Public Use
  Company Number: GB-BIOGENIDEC-2010BI019535

PATIENT
  Age: 34 Year
  Sex: Female

DRUGS (4)
  1. TYSABRI [Suspect]
     Indication: MULTIPLE SCLEROSIS
     Route: 042
     Dates: start: 20090303
  2. PROPRANOLOL [Concomitant]
     Indication: TREMOR
  3. CITALOPRAM HYDROBROMIDE [Concomitant]
  4. OXYBUTYNIN [Concomitant]
     Indication: BLADDER DISORDER

REACTIONS (1)
  - MULTIPLE SCLEROSIS [None]
